FAERS Safety Report 24840938 (Version 1)
Quarter: 2025Q1

REPORT INFORMATION
  Report Type: Report from Study
  Country: US (occurrence: US)
  Receive Date: 20250114
  Receipt Date: 20250114
  Transmission Date: 20250408
  Serious: Yes (Hospitalization)
  Sender: BAYER HEALTHCARE PHARMACEUTICALS INC.
  Company Number: US-BAYER-2025A005415

PATIENT
  Age: 69 Year
  Sex: Male

DRUGS (1)
  1. NUBEQA [Suspect]
     Active Substance: DAROLUTAMIDE
     Dates: end: 20250112

REACTIONS (2)
  - Infection [Unknown]
  - Product supply issue [None]

NARRATIVE: CASE EVENT DATE: 20240112
